FAERS Safety Report 18578448 (Version 1)
Quarter: 2020Q4

REPORT INFORMATION
  Report Type: Spontaneous
  Country: US (occurrence: US)
  Receive Date: 20201204
  Receipt Date: 20201204
  Transmission Date: 20210114
  Serious: No
  Sender: FDA-Public Use
  Company Number: US-TEVA-2020-US-1848223

PATIENT
  Sex: Female

DRUGS (4)
  1. AJOVY [Suspect]
     Active Substance: FREMANEZUMAB-VFRM
  2. EMGALITY [Concomitant]
     Active Substance: GALCANEZUMAB-GNLM
  3. AJOVY [Suspect]
     Active Substance: FREMANEZUMAB-VFRM
     Route: 065
  4. AIMOVIG [Concomitant]
     Active Substance: ERENUMAB-AOOE

REACTIONS (2)
  - Therapeutic response unexpected [Unknown]
  - Hypersensitivity [Unknown]
